FAERS Safety Report 9319808 (Version 1)
Quarter: 2013Q2

REPORT INFORMATION
  Report Type: Spontaneous
  Country: US (occurrence: US)
  Receive Date: 20130530
  Receipt Date: 20130530
  Transmission Date: 20140414
  Serious: Yes (Hospitalization)
  Sender: FDA-Public Use
  Company Number: US-BAYER-2013-065998

PATIENT
  Age: 43 Year
  Sex: Female
  Weight: 113.83 kg

DRUGS (7)
  1. OCELLA [Suspect]
     Dosage: UNK
     Dates: start: 200812
  2. YASMIN [Suspect]
  3. FAMOTIDINE [Concomitant]
  4. METOPROLOL [Concomitant]
  5. CELEXA [Concomitant]
  6. CEFAZOLIN [Concomitant]
     Route: 042
  7. BACTRIM [Concomitant]

REACTIONS (6)
  - Superior sagittal sinus thrombosis [None]
  - Subarachnoid haemorrhage [None]
  - Cerebral infarction [None]
  - Hemiparesis [None]
  - Convulsion [None]
  - Muscular weakness [None]
